FAERS Safety Report 11449751 (Version 1)
Quarter: 2015Q3

REPORT INFORMATION
  Report Type: Spontaneous
  Country: US (occurrence: US)
  Receive Date: 20150903
  Receipt Date: 20150903
  Transmission Date: 20151125
  Serious: No
  Sender: FDA-Public Use
  Company Number: US-ROCHE-1073154

PATIENT
  Age: 51 Year
  Sex: Female
  Weight: 60.38 kg

DRUGS (4)
  1. RIBAVIRIN. [Suspect]
     Active Substance: RIBAVIRIN
     Indication: CHRONIC HEPATITIS C
     Dosage: 48 WEEK COURSE
     Route: 065
     Dates: start: 20120409
  2. PEGASYS [Suspect]
     Active Substance: PEGINTERFERON ALFA-2A
     Indication: CHRONIC HEPATITIS C
     Dosage: 48 WEEK COURSE
     Route: 058
     Dates: start: 20120408, end: 20120624
  3. TELAPREVIR [Suspect]
     Active Substance: TELAPREVIR
     Indication: CHRONIC HEPATITIS C
     Dosage: 48 WEEK COURSE
     Route: 048
     Dates: start: 20120408, end: 20120624
  4. RIBAVIRIN. [Suspect]
     Active Substance: RIBAVIRIN
     Route: 048
     Dates: start: 20120408, end: 20120624

REACTIONS (3)
  - Gingival bleeding [Unknown]
  - Oral mucosal eruption [Unknown]
  - Toothache [Unknown]

NARRATIVE: CASE EVENT DATE: 20120621
